FAERS Safety Report 4414619-5 (Version None)
Quarter: 2004Q3

REPORT INFORMATION
  Report Type: 
  Country: None (occurrence: None)
  Receive Date: 20040729
  Receipt Date: 20040715
  Transmission Date: 20050211
  Serious: Yes (Hospitalization)
  Sender: FDA-Public Use
  Company Number: 2004AP03770

PATIENT
  Age: 53 Year
  Sex: Male

DRUGS (4)
  1. OMEPRAL [Suspect]
     Dosage: 20 MG DAILY PO
     Route: 048
     Dates: start: 20040519, end: 20040714
  2. COMELIAN [Concomitant]
  3. MAGNESIUM OXIDE [Concomitant]
  4. PREDONINE [Concomitant]

REACTIONS (3)
  - CONSTIPATION [None]
  - NEPHROTIC SYNDROME [None]
  - PHOTOSENSITIVE RASH [None]
